FAERS Safety Report 8160728-7 (Version None)
Quarter: 2012Q1

REPORT INFORMATION
  Report Type: 
  Country: None (occurrence: None)
  Receive Date: 20120223
  Receipt Date: 20120214
  Transmission Date: 20120608
  Serious: Yes (Hospitalization)
  Sender: FDA-Public Use
  Company Number: PHHY2011TW55558

PATIENT
  Sex: Male
  Weight: 48 kg

DRUGS (1)
  1. ALISKIREN [Suspect]
     Indication: HYPERTENSION
     Dosage: 100 MG, UNK
     Route: 048
     Dates: start: 20110201, end: 20110607

REACTIONS (2)
  - CONJUNCTIVAL HYPERAEMIA [None]
  - OEDEMA [None]
